FAERS Safety Report 18576565 (Version 5)
Quarter: 2021Q2

REPORT INFORMATION
  Report Type: Spontaneous
  Country: US (occurrence: US)
  Receive Date: 20201203
  Receipt Date: 20210618
  Transmission Date: 20210717
  Serious: No
  Sender: FDA-Public Use
  Company Number: US-PFIZER INC-2020475774

PATIENT
  Sex: Female

DRUGS (2)
  1. CORTEF [Suspect]
     Active Substance: HYDROCORTISONE
     Indication: ADDISON^S DISEASE
     Dosage: 10 MG
     Route: 048
  2. CORTEF [Suspect]
     Active Substance: HYDROCORTISONE
     Dosage: UNK

REACTIONS (5)
  - Blood potassium abnormal [Unknown]
  - Feeling abnormal [Unknown]
  - Poor quality product administered [Unknown]
  - Product physical issue [Unknown]
  - Blood sodium abnormal [Unknown]
